FAERS Safety Report 15390906 (Version 2)
Quarter: 2018Q4

REPORT INFORMATION
  Report Type: Spontaneous
  Country: US (occurrence: US)
  Receive Date: 20180917
  Receipt Date: 20181127
  Transmission Date: 20190204
  Serious: Yes (Other)
  Sender: FDA-Public Use
  Company Number: US-SA-2018SA258713

PATIENT
  Age: 63 Year
  Sex: Female
  Weight: 77 kg

DRUGS (21)
  1. TAXOTERE [Suspect]
     Active Substance: DOCETAXEL
     Indication: BREAST CANCER FEMALE
     Dosage: UNK
     Route: 042
     Dates: start: 20110901, end: 20110901
  2. ZYRTEC [Concomitant]
     Active Substance: CETIRIZINE HYDROCHLORIDE
     Dosage: 5 MG, QD
     Route: 048
     Dates: start: 20110908
  3. NEOSAR [Concomitant]
     Active Substance: CYCLOPHOSPHAMIDE
     Dosage: UNK UNK, UNK
     Route: 065
  4. MULTIVITAMIN 6 [Concomitant]
     Dosage: 1 DF, QD
     Route: 048
     Dates: start: 20110908
  5. ZOFRAN [ONDANSETRON] [Concomitant]
     Indication: NAUSEA
     Dosage: 1 DF, Q6H AS NEEDED
     Route: 048
     Dates: start: 20110909
  6. NORVASC [Concomitant]
     Active Substance: AMLODIPINE BESYLATE
     Dosage: 5 MG, QD
     Route: 048
     Dates: start: 20110908
  7. CALCIUM LACTATE [Concomitant]
     Active Substance: CALCIUM LACTATE
     Dosage: 3 DF, QD (EVERY NIGHT AT BEDTIME)
     Route: 048
     Dates: start: 20110908
  8. METFORMIN [Concomitant]
     Active Substance: METFORMIN HYDROCHLORIDE
     Dosage: 500 MG, BID
     Route: 048
     Dates: start: 20110908
  9. METRONIDAZOLE. [Concomitant]
     Active Substance: METRONIDAZOLE
     Dosage: APPLIED TO AFFECTED AREA TWO TIMES DAILYUNK
     Route: 065
  10. DECADRON [DEXAMETHASONE] [Concomitant]
     Dosage: 2 DF BY MOUTH AND TAKES 8 MG TWICE A DAY FOR THREE DAYS START DAY BEFRE CHEMO
     Route: 048
     Dates: start: 20110902
  11. LOPERAMIDE [Concomitant]
     Active Substance: LOPERAMIDE
     Dosage: 2 TABLET ONCE, THEN 1 TABLET EVERY 2 RS UNTIL SYMPTOMS RESOLVE
     Route: 065
     Dates: start: 20110908
  12. ATIVAN [Concomitant]
     Active Substance: LORAZEPAM
     Dosage: 1 DF, Q6H AS NEEDED
     Route: 048
     Dates: start: 20110902
  13. PATANOL [Concomitant]
     Active Substance: OLOPATADINE HYDROCHLORIDE
     Indication: HYPERSENSITIVITY
     Dosage: PLACE 1 DROP IN EACH EYE 2 TIMES DAILY AS NEEDED
  14. FENOFIBRATE. [Concomitant]
     Active Substance: FENOFIBRATE
     Dosage: 160 MG, QD
     Route: 048
     Dates: start: 20110908
  15. SINGULAIR [Concomitant]
     Active Substance: MONTELUKAST SODIUM
     Dosage: 1 DF, VERY EVENING
     Route: 065
     Dates: start: 20110908
  16. NORVASC [Concomitant]
     Active Substance: AMLODIPINE BESYLATE
     Dosage: 10 MG, QD
     Route: 048
     Dates: end: 20130207
  17. HYZAAR [Concomitant]
     Active Substance: HYDROCHLOROTHIAZIDE\LOSARTAN POTASSIUM
     Dosage: 100-25 MG PER TABLET
     Route: 048
     Dates: start: 20110908
  18. POTASSIUM [Concomitant]
     Active Substance: POTASSIUM
     Dosage: 2 DF, QD
     Route: 048
     Dates: start: 20110908
  19. TAXOTERE [Suspect]
     Active Substance: DOCETAXEL
     Dosage: UNK, QCY
     Route: 042
     Dates: start: 20111103, end: 20111103
  20. AUGMENTINE [AMOXICILLIN;CLAVULANIC ACID] [Concomitant]
     Active Substance: AMOXICILLIN\CLAVULANIC ACID
     Dosage: 1 DF, BID (875-125) MG
     Route: 048
  21. NASONEX [Concomitant]
     Active Substance: MOMETASONE FUROATE
     Dosage: 2 SPRAYS EACH NOSTRIL DAILY UNK
     Route: 065
     Dates: start: 20110907

REACTIONS (5)
  - Psychological trauma [Unknown]
  - Alopecia [Not Recovered/Not Resolved]
  - Impaired quality of life [Unknown]
  - Pain [Unknown]
  - Anxiety [Unknown]

NARRATIVE: CASE EVENT DATE: 20110901
